FAERS Safety Report 13434890 (Version 1)
Quarter: 2017Q2

REPORT INFORMATION
  Report Type: Spontaneous
  Country: US (occurrence: US)
  Receive Date: 20170412
  Receipt Date: 20170412
  Transmission Date: 20170830
  Serious: No
  Sender: FDA-Public Use
  Company Number: US-SA-2016SA062326

PATIENT
  Sex: Female

DRUGS (1)
  1. ALLEGRA ALLERGY [Suspect]
     Active Substance: FEXOFENADINE HYDROCHLORIDE
     Dosage: START DATE: 10:30 LAST NIGHT
     Route: 065

REACTIONS (5)
  - Feeling abnormal [Unknown]
  - Eye pruritus [Unknown]
  - Throat irritation [Unknown]
  - Rhinorrhoea [Unknown]
  - Drug ineffective [Unknown]
